FAERS Safety Report 9259405 (Version 10)
Quarter: 2014Q1

REPORT INFORMATION
  Report Type: Report from Study
  Country: US (occurrence: US)
  Receive Date: 20130427
  Receipt Date: 20140321
  Transmission Date: 20141002
  Serious: Yes (Hospitalization)
  Sender: FDA-Public Use
  Company Number: US-ROCHE-1219125

PATIENT
  Age: 59 Year
  Sex: Female

DRUGS (11)
  1. PEGASYS [Suspect]
     Indication: CHRONIC HEPATITIS C
     Dosage: 2001/2003
     Route: 065
  2. PEGASYS [Suspect]
     Route: 065
     Dates: start: 2009
  3. PEGASYS [Suspect]
     Route: 058
     Dates: start: 20130226
  4. PEGASYS [Suspect]
     Route: 058
     Dates: start: 20130430
  5. PEGASYS [Suspect]
     Route: 058
     Dates: start: 201310
  6. PEGASYS [Suspect]
     Route: 058
     Dates: start: 20130826, end: 20140128
  7. RIBASPHERE [Suspect]
     Indication: CHRONIC HEPATITIS C
     Dosage: DIVIDED DOSES
     Route: 048
     Dates: start: 20130226
  8. RIBASPHERE [Suspect]
     Route: 048
     Dates: start: 20130430
  9. RIBASPHERE [Suspect]
     Route: 048
     Dates: start: 201305
  10. RIBASPHERE [Suspect]
     Route: 048
     Dates: start: 20130826, end: 20140128
  11. TELAPREVIR [Suspect]
     Indication: CHRONIC HEPATITIS C
     Route: 065
     Dates: start: 20130226, end: 20130521

REACTIONS (7)
  - Red blood cell count decreased [Unknown]
  - White blood cell count decreased [Recovering/Resolving]
  - Anaemia [Recovering/Resolving]
  - Haemorrhoids [Unknown]
  - Diarrhoea [Unknown]
  - Decreased appetite [Unknown]
  - Alopecia [Unknown]
